FAERS Safety Report 7816520-3 (Version None)
Quarter: 2011Q4

REPORT INFORMATION
  Report Type: 
  Country: None (occurrence: None)
  Receive Date: 20111017
  Receipt Date: 20111005
  Transmission Date: 20120403
  Serious: Yes (Death, Congenital Anomaly)
  Sender: FDA-Public Use
  Company Number: GB-RANBAXY-2011R1-48839

PATIENT

DRUGS (3)
  1. SERTRALINE HYDROCHLORIDE [Suspect]
     Indication: MATERNAL EXPOSURE DURING PREGNANCY
     Dosage: 100 MG, 1DAY
     Route: 064
  2. AZATHIOPRINE [Suspect]
     Indication: MATERNAL EXPOSURE DURING PREGNANCY
     Dosage: 1 DAYS
     Route: 064
  3. PROGRAF [Suspect]
     Indication: MATERNAL EXPOSURE DURING PREGNANCY
     Dosage: 10 MG, 1 DAYS
     Route: 064

REACTIONS (1)
  - MULTIPLE CARDIAC DEFECTS [None]
